FAERS Safety Report 14334952 (Version 1)
Quarter: 2017Q4

REPORT INFORMATION
  Report Type: Spontaneous
  Country: FR (occurrence: FR)
  Receive Date: 20171229
  Receipt Date: 20171229
  Transmission Date: 20180321
  Serious: Yes (Hospitalization)
  Sender: FDA-Public Use
  Company Number: FR-CONCORDIA PHARMACEUTICALS INC.-GSH201712-006703

PATIENT
  Age: 67 Year
  Sex: Male

DRUGS (6)
  1. LODOZ [Concomitant]
     Active Substance: BISOPROLOL FUMARATE\HYDROCHLOROTHIAZIDE
     Dates: start: 2014
  2. LIPANTHYL [Concomitant]
     Active Substance: FENOFIBRATE
     Dates: start: 2014
  3. BIOCIDAN [Concomitant]
  4. PLAQUENIL [Suspect]
     Active Substance: HYDROXYCHLOROQUINE SULFATE
     Indication: SARCOIDOSIS
     Route: 048
     Dates: start: 20161222
  5. APROVEL [Concomitant]
     Active Substance: IRBESARTAN
     Dates: start: 2014
  6. BETAMETHASONE. [Concomitant]
     Active Substance: BETAMETHASONE

REACTIONS (2)
  - Acute generalised exanthematous pustulosis [Recovering/Resolving]
  - Disseminated intravascular coagulation [Recovered/Resolved]

NARRATIVE: CASE EVENT DATE: 20170104
